FAERS Safety Report 10910791 (Version 8)
Quarter: 2016Q1

REPORT INFORMATION
  Report Type: Report from Study
  Country: US (occurrence: US)
  Receive Date: 20150312
  Receipt Date: 20160322
  Transmission Date: 20160525
  Serious: Yes (Hospitalization)
  Sender: FDA-Public Use
  Company Number: US-SA-2015SA029479

PATIENT
  Age: 52 Year
  Sex: Female

DRUGS (3)
  1. AUBAGIO [Suspect]
     Active Substance: TERIFLUNOMIDE
     Indication: MULTIPLE SCLEROSIS
     Route: 048
     Dates: start: 20150209, end: 20150219
  2. AUBAGIO [Suspect]
     Active Substance: TERIFLUNOMIDE
     Indication: MULTIPLE SCLEROSIS
     Route: 048
     Dates: start: 20150511, end: 20150520
  3. AUBAGIO [Suspect]
     Active Substance: TERIFLUNOMIDE
     Indication: MULTIPLE SCLEROSIS
     Route: 048
     Dates: start: 20150521

REACTIONS (22)
  - Balance disorder [Unknown]
  - Feeling abnormal [Unknown]
  - Visual impairment [Unknown]
  - Intentional product misuse [Unknown]
  - Fatigue [Unknown]
  - Diplopia [Unknown]
  - Emotional disorder [Unknown]
  - Pain [Unknown]
  - Feeling abnormal [Unknown]
  - Malaise [Recovering/Resolving]
  - Anxiety [Recovering/Resolving]
  - Palpitations [Recovering/Resolving]
  - Humidity intolerance [Unknown]
  - Nausea [Recovered/Resolved]
  - Diarrhoea [Recovered/Resolved]
  - General physical health deterioration [Unknown]
  - Dehydration [Unknown]
  - Malaise [Unknown]
  - Depression [Not Recovered/Not Resolved]
  - Hypertension [Recovering/Resolving]
  - Temperature intolerance [Unknown]
  - Alopecia [Not Recovered/Not Resolved]

NARRATIVE: CASE EVENT DATE: 2015
